FAERS Safety Report 10567482 (Version 1)
Quarter: 2014Q4

REPORT INFORMATION
  Report Type: Spontaneous
  Country: US (occurrence: None)
  Receive Date: 20141105
  Receipt Date: 20141105
  Transmission Date: 20150529
  Serious: No
  Sender: FDA-Public Use
  Company Number: None

PATIENT
  Age: 69 Year
  Sex: Female

DRUGS (1)
  1. TUBERSOL [Suspect]
     Active Substance: TUBERCULIN PURIFIED PROTEIN DERIVATIVE

REACTIONS (5)
  - Urticaria [None]
  - Swollen tongue [None]
  - Headache [None]
  - Adverse drug reaction [None]
  - Oral discomfort [None]

NARRATIVE: CASE EVENT DATE: 20140908
